FAERS Safety Report 4804383-X (Version None)
Quarter: 2005Q4

REPORT INFORMATION
  Report Type: 
  Country: None (occurrence: None)
  Receive Date: 20051018
  Receipt Date: 20051018
  Transmission Date: 20060501
  Serious: Yes (Hospitalization, Other)
  Sender: FDA-Public Use
  Company Number: None

PATIENT
  Sex: Male
  Weight: 92.5 kg

DRUGS (6)
  1. CAPECITABINE (XELODA) [Suspect]
     Indication: ADENOCARCINOMA
     Dosage: SEE IMAGE
     Dates: start: 20050619, end: 20050728
  2. CAPECITABINE (XELODA) [Suspect]
     Indication: RECTAL CANCER
     Dosage: SEE IMAGE
     Dates: start: 20050619, end: 20050728
  3. CAPECITABINE (XELODA) [Suspect]
     Indication: ADENOCARCINOMA
     Dosage: SEE IMAGE
     Dates: start: 20050924
  4. CAPECITABINE (XELODA) [Suspect]
     Indication: RECTAL CANCER
     Dosage: SEE IMAGE
     Dates: start: 20050924
  5. OXALIPLATIN (ELOXATIN) [Suspect]
     Dosage: SEE IMAGE
     Dates: start: 20050620, end: 20080718
  6. OXALIPLATIN (ELOXATIN) [Suspect]
     Dosage: SEE IMAGE
     Dates: start: 20050924

REACTIONS (4)
  - HYDRONEPHROSIS [None]
  - PELVIC ABSCESS [None]
  - RENAL FAILURE ACUTE [None]
  - THROMBOPHLEBITIS [None]
